FAERS Safety Report 5897527-2 (Version None)
Quarter: 2008Q3

REPORT INFORMATION
  Report Type: 
  Country: None (occurrence: None)
  Receive Date: 20080916
  Receipt Date: 20080313
  Transmission Date: 20090109
  Serious: Yes (Other)
  Sender: FDA-Public Use
  Company Number: S08-USA-00585-01

PATIENT
  Sex: Female

DRUGS (4)
  1. CELEXA [Suspect]
     Indication: DEPRESSION
     Dosage: 40 MG (40 MG,ONCE A DAY),ORAL
     Route: 048
  2. DIGOXIN [Concomitant]
  3. TRAZODONE (TRAZODONE) (TRAZODONE) [Concomitant]
  4. ^PAIN MEDICATIONS^ (NOS) [Concomitant]

REACTIONS (1)
  - HYPOTHYROIDISM [None]
